FAERS Safety Report 22110310 (Version 1)
Quarter: 2023Q1

REPORT INFORMATION
  Report Type: Spontaneous
  Country: FR (occurrence: FR)
  Receive Date: 20230317
  Receipt Date: 20230317
  Transmission Date: 20230417
  Serious: Yes (Hospitalization)
  Sender: FDA-Public Use
  Company Number: None

PATIENT
  Age: 68 Year
  Sex: Male
  Weight: 57.8 kg

DRUGS (14)
  1. COTRIMOXAZOLE [Interacting]
     Active Substance: SULFAMETHOXAZOLE\TRIMETHOPRIM
     Indication: Morganella infection
     Dosage: STRENGTH : 800MG/160MG
     Route: 065
     Dates: start: 20230107, end: 20230112
  2. HEPARIN SODIUM [Interacting]
     Active Substance: HEPARIN SODIUM
     Indication: Thrombosis prophylaxis
     Dosage: IN VIAL, 7500 TO 10000 IU/ML/DAY, STRENGTH : 25,000 IU/5 ML
     Route: 042
     Dates: start: 20230112, end: 20230124
  3. HEPARIN SODIUM [Interacting]
     Active Substance: HEPARIN SODIUM
     Dosage: UNIT DOSE : 33500 IU, FREQUENCY TIME : 1 DAY, DURATION : 2 DAYS
     Route: 042
     Dates: start: 20230108, end: 20230110
  4. HEPARIN SODIUM [Interacting]
     Active Substance: HEPARIN SODIUM
     Dosage: UNIT DOSE : 33750 IU, FREQUENCY TIME : 1 DAY, DURATION : 1 DAYS
     Route: 042
     Dates: start: 20230107, end: 20230107
  5. FLUINDIONE [Interacting]
     Active Substance: FLUINDIONE
     Indication: Thrombosis prophylaxis
     Dates: start: 20230107, end: 20230107
  6. FLUINDIONE [Interacting]
     Active Substance: FLUINDIONE
     Dosage: STRENGTH : 20 MG, SCORED TABLET, UNIT DOSE :   0.75 DOSAGE FORMS, FREQUENCY TIME : 1 DAY
     Dates: start: 20230124
  7. FLUINDIONE [Interacting]
     Active Substance: FLUINDIONE
     Dosage: STRENGTH : 20 MG, SCORED TABLET, UNIT DOSE :   0.75 DOSAGE FORMS, FREQUENCY TIME : 1 DAY, DURATION :
     Dates: start: 20230108, end: 20230110
  8. ALDACTONE [Concomitant]
     Active Substance: SPIRONOLACTONE
     Indication: Hypertension
     Dates: start: 20230108, end: 20230123
  9. DAFALGAN CODEINE [Concomitant]
     Active Substance: ACETAMINOPHEN\CODEINE PHOSPHATE
     Indication: Morganella infection
     Dosage: IF NECESSARY
     Dates: start: 20230107, end: 20230111
  10. AMIODARONE [Concomitant]
     Active Substance: AMIODARONE
     Indication: Ischaemic heart disease prophylaxis
     Dates: start: 20230109, end: 20230129
  11. FUROSEMIDE [Concomitant]
     Active Substance: FUROSEMIDE
     Indication: Hypovolaemia
     Dates: start: 20230107, end: 20230110
  12. PANTOPRAZOLE SODIUM [Concomitant]
     Active Substance: PANTOPRAZOLE SODIUM
     Indication: Gastritis prophylaxis
     Dates: start: 20230107, end: 20230122
  13. ATORVASTATIN [Concomitant]
     Active Substance: ATORVASTATIN
     Indication: Cardiovascular event prophylaxis
     Dates: start: 20230107, end: 20230114
  14. IRON\MINERALS\POTASSIUM IOD\SODIUM FLUORIDE\SODIUM MOLYBDATE\SODIUM SE [Concomitant]
     Active Substance: IRON\MINERALS\POTASSIUM IOD\SODIUM FLUORIDE\SODIUM MOLYBDATE\SODIUM SELENITE\ZINC
     Indication: Parenteral nutrition
     Dates: start: 20230108, end: 20230213

REACTIONS (4)
  - Anticoagulation drug level above therapeutic [Recovered/Resolved]
  - Anticoagulation drug level above therapeutic [Recovered/Resolved]
  - Haematoma muscle [Recovering/Resolving]
  - Drug interaction [Unknown]

NARRATIVE: CASE EVENT DATE: 20230110
